FAERS Safety Report 8352369-3 (Version None)
Quarter: 2012Q2

REPORT INFORMATION
  Report Type: 
  Country: None (occurrence: None)
  Receive Date: 20120511
  Receipt Date: 20120427
  Transmission Date: 20120825
  Serious: Yes (Other)
  Sender: FDA-Public Use
  Company Number: DE-VERTEX PHARMACEUTICALS INC.-000000000000000629

PATIENT
  Sex: Female

DRUGS (5)
  1. INCIVO [Suspect]
     Indication: HEPATITIS C
     Dosage: DOSAGE FORM: TABLET
     Route: 048
     Dates: start: 20120309, end: 20120315
  2. AMLODIPINE BESYLATE [Concomitant]
     Indication: HYPERTENSION
     Dosage: DOSAGE FORM: UNSPECIFIED
     Route: 048
  3. RIBAVIRIN [Concomitant]
     Indication: HEPATITIS C
     Dosage: DOSAGE FORM: UNSPECIFIED
     Route: 065
     Dates: start: 20120309
  4. PEGINTERFERON ALFA-2A [Concomitant]
     Indication: HEPATITIS C
     Dosage: DOSAGE FORM: UNSPECIFIED
     Route: 065
     Dates: start: 20120309
  5. INCIVO [Suspect]
     Dosage: DOSAGE FORM: TABLET
     Route: 048
     Dates: start: 20120329

REACTIONS (5)
  - DIZZINESS [None]
  - SYNCOPE [None]
  - NAUSEA [None]
  - FALL [None]
  - INAPPROPRIATE SCHEDULE OF DRUG ADMINISTRATION [None]
